FAERS Safety Report 5859584-9 (Version None)
Quarter: 2008Q3

REPORT INFORMATION
  Report Type: 
  Country: None (occurrence: None)
  Receive Date: 20080827
  Receipt Date: 20080825
  Transmission Date: 20090109
  Serious: Yes (Other)
  Sender: FDA-Public Use
  Company Number: D0058470A

PATIENT
  Age: 26 Year
  Sex: Male
  Weight: 75 kg

DRUGS (3)
  1. LAMICTAL [Suspect]
     Dosage: 75MG PER DAY
     Route: 048
     Dates: start: 20080822, end: 20080822
  2. RISPERIDONE [Suspect]
     Dosage: 12MG PER DAY
     Route: 048
     Dates: start: 20080822, end: 20080822
  3. LORAZEPAM [Suspect]
     Dosage: 4.5MG PER DAY
     Route: 048
     Dates: start: 20080822, end: 20080822

REACTIONS (4)
  - DEPRESSED LEVEL OF CONSCIOUSNESS [None]
  - INTENTIONAL OVERDOSE [None]
  - SUICIDE ATTEMPT [None]
  - TACHYCARDIA [None]
